FAERS Safety Report 8406513-X (Version None)
Quarter: 2012Q2

REPORT INFORMATION
  Report Type: 
  Country: None (occurrence: None)
  Receive Date: 20120604
  Receipt Date: 20120524
  Transmission Date: 20120825
  Serious: Yes (Other)
  Sender: FDA-Public Use
  Company Number: US-SANOFI-AVENTIS-2012SA037842

PATIENT
  Age: 73 Year
  Sex: Female

DRUGS (4)
  1. PLAQUENIL [Concomitant]
  2. ARAVA [Suspect]
     Indication: RHEUMATOID ARTHRITIS
     Route: 048
     Dates: start: 20120322, end: 20120401
  3. ARAVA [Suspect]
     Route: 048
     Dates: start: 20120401, end: 20120416
  4. ARAVA [Suspect]
     Route: 048
     Dates: start: 20120422, end: 20120501

REACTIONS (5)
  - WEIGHT DECREASED [None]
  - ASTHENIA [None]
  - PULMONARY OEDEMA [None]
  - ABDOMINAL PAIN [None]
  - DIARRHOEA [None]
